FAERS Safety Report 5824158-2 (Version None)
Quarter: 2008Q3

REPORT INFORMATION
  Report Type: 
  Country: None (occurrence: None)
  Receive Date: 20080722
  Receipt Date: 20080704
  Transmission Date: 20090109
  Serious: Yes (Other)
  Sender: FDA-Public Use
  Company Number: 8031288

PATIENT
  Age: 16 Year
  Sex: Female
  Weight: 52 kg

DRUGS (1)
  1. KEPPRA [Suspect]
     Dosage: 375 MG 2/D PO
     Route: 048
     Dates: start: 20080125

REACTIONS (1)
  - AUTOIMMUNE THYROIDITIS [None]
